FAERS Safety Report 8170288-2 (Version None)
Quarter: 2012Q1

REPORT INFORMATION
  Report Type: 
  Country: None (occurrence: None)
  Receive Date: 20120228
  Receipt Date: 20120223
  Transmission Date: 20120608
  Serious: Yes (Other)
  Sender: FDA-Public Use
  Company Number: PHHY2012CL015874

PATIENT
  Age: 76 Year
  Sex: Female

DRUGS (4)
  1. VALSARTAN  AND HYDROCHLOROTHIAZIDE [Suspect]
     Indication: HYPERTENSION
     Dosage: 1 DF, PER DAY (160/25 MG)
     Dates: start: 20081201
  2. ALBUTEROL [Concomitant]
  3. BETAMETHASONE [Concomitant]
  4. NORVASC [Concomitant]

REACTIONS (1)
  - ASTHMA [None]
